FAERS Safety Report 19757270 (Version 4)
Quarter: 2021Q3

REPORT INFORMATION
  Report Type: Spontaneous
  Country: JP (occurrence: JP)
  Receive Date: 20210827
  Receipt Date: 20210928
  Transmission Date: 20211014
  Serious: Yes (Death, Hospitalization, Other)
  Sender: FDA-Public Use
  Company Number: JP-B.I. PHARMACEUTICALS,INC./RIDGEFIELD-2021-BI-123918

PATIENT
  Age: 84 Year
  Sex: Female
  Weight: 51.8 kg

DRUGS (5)
  1. OLMESARTAN MEDOXOMIL. [Suspect]
     Active Substance: OLMESARTAN MEDOXOMIL
     Route: 048
  2. SUNRYTHM [Suspect]
     Active Substance: PILSICAINIDE HYDROCHLORIDE
     Indication: ARRHYTHMIA
     Route: 048
  3. AMLODIPINE [Suspect]
     Active Substance: AMLODIPINE BESYLATE
     Indication: HYPERTENSION
     Route: 048
  4. OLMESARTAN MEDOXOMIL. [Suspect]
     Active Substance: OLMESARTAN MEDOXOMIL
     Indication: HYPERTENSION
     Route: 048
  5. PRIZBIND [Suspect]
     Active Substance: IDARUCIZUMAB
     Indication: PROCOAGULANT THERAPY
     Route: 042
     Dates: start: 20210820, end: 20210820

REACTIONS (2)
  - Cardiogenic shock [Fatal]
  - Puncture site haemorrhage [Fatal]

NARRATIVE: CASE EVENT DATE: 20210819
